FAERS Safety Report 24933541 (Version 1)
Quarter: 2025Q1

REPORT INFORMATION
  Report Type: Report from Study
  Country: US (occurrence: US)
  Receive Date: 20250206
  Receipt Date: 20250206
  Transmission Date: 20250408
  Serious: Yes (Hospitalization, Other)
  Sender: EXELIXIS
  Company Number: US-EXELIXIS-CABO-23071190

PATIENT
  Age: 67 Year
  Sex: Female

DRUGS (10)
  1. CABOMETYX [Suspect]
     Active Substance: CABOZANTINIB S-MALATE
     Indication: Renal cancer
     Dosage: 60 MG, QD
     Route: 048
  2. CABOMETYX [Suspect]
     Active Substance: CABOZANTINIB S-MALATE
     Dosage: 60 MG, QD
     Route: 048
     Dates: end: 20231123
  3. CABOMETYX [Suspect]
     Active Substance: CABOZANTINIB S-MALATE
     Dosage: 60 MG, QD
     Route: 048
  4. CABOMETYX [Suspect]
     Active Substance: CABOZANTINIB S-MALATE
     Dosage: 60 MG, QD
     Route: 048
     Dates: end: 202312
  5. CABOMETYX [Suspect]
     Active Substance: CABOZANTINIB S-MALATE
     Dosage: 60 MG, QD
     Route: 048
     Dates: start: 202312, end: 20231231
  6. CABOMETYX [Suspect]
     Active Substance: CABOZANTINIB S-MALATE
     Dosage: 60 MG, QD
     Route: 048
     Dates: start: 20240102, end: 20240105
  7. CABOMETYX [Suspect]
     Active Substance: CABOZANTINIB S-MALATE
     Dosage: 60 MG, QD
     Route: 048
     Dates: start: 20240107, end: 20240107
  8. CABOMETYX [Suspect]
     Active Substance: CABOZANTINIB S-MALATE
     Dosage: 60 MG, QD
     Route: 048
     Dates: start: 202401, end: 202401
  9. CABOMETYX [Suspect]
     Active Substance: CABOZANTINIB S-MALATE
     Dosage: 40 MG, QD
  10. ASPIRIN [Suspect]
     Active Substance: ASPIRIN
     Indication: Product used for unknown indication

REACTIONS (28)
  - Palmar-plantar erythrodysaesthesia syndrome [Unknown]
  - Transient ischaemic attack [Recovered/Resolved]
  - Adverse drug reaction [Unknown]
  - Blood pressure increased [Recovering/Resolving]
  - Stomatitis [Unknown]
  - Dysphonia [Unknown]
  - Dyspepsia [Unknown]
  - Constipation [Recovering/Resolving]
  - Abdominal pain [Unknown]
  - Muscle spasms [Unknown]
  - Weight decreased [Unknown]
  - Nausea [Unknown]
  - Throat irritation [Unknown]
  - Tongue dry [Unknown]
  - Acne [Unknown]
  - Burning sensation [Unknown]
  - Feeling cold [Unknown]
  - Nasal dryness [Unknown]
  - Renal pain [Unknown]
  - Anal fissure [Unknown]
  - Haemorrhoids [Unknown]
  - Impaired healing [Unknown]
  - Blood pressure decreased [Unknown]
  - Epistaxis [Unknown]
  - Skin ulcer [Unknown]
  - Arthralgia [Unknown]
  - Fatigue [Unknown]
  - Product dose omission issue [Unknown]

NARRATIVE: CASE EVENT DATE: 20231122
